FAERS Safety Report 23536184 (Version 5)
Quarter: 2025Q4

REPORT INFORMATION
  Report Type: Spontaneous
  Country: JP (occurrence: JP)
  Receive Date: 20240219
  Receipt Date: 20251204
  Transmission Date: 20260117
  Serious: Yes (Hospitalization, Other)
  Sender: TAKEDA
  Company Number: JP-TAKEDA-2024TJP002506

PATIENT
  Age: 15 Year
  Sex: Female

DRUGS (5)
  1. INTUNIV [Suspect]
     Active Substance: GUANFACINE HYDROCHLORIDE
     Indication: Suicide attempt
     Dosage: 348 MILLIGRAM
  2. INTUNIV [Suspect]
     Active Substance: GUANFACINE HYDROCHLORIDE
     Indication: Attention deficit hyperactivity disorder
     Dosage: 126 MILLIGRAM
  3. INTUNIV [Suspect]
     Active Substance: GUANFACINE HYDROCHLORIDE
     Indication: Autism spectrum disorder
     Dosage: 1344 MILLIGRAM
  4. NOREPINEPHRINE [Concomitant]
     Active Substance: NOREPINEPHRINE
     Dosage: UNK
  5. DOBUTAMINE HYDROCHLORIDE [Concomitant]
     Active Substance: DOBUTAMINE HYDROCHLORIDE
     Dosage: 1.3 MICROGRAM/KILOGRAM

REACTIONS (16)
  - Stress cardiomyopathy [Recovered/Resolved]
  - Multiple organ dysfunction syndrome [Recovering/Resolving]
  - Hypoxia [Unknown]
  - Depressed level of consciousness [Unknown]
  - Respiratory failure [Unknown]
  - Stress cardiomyopathy [Recovering/Resolving]
  - Respiratory failure [Recovering/Resolving]
  - Suicide attempt [Unknown]
  - Electrocardiogram QT prolonged [Recovering/Resolving]
  - Electrocardiogram QT prolonged [Recovering/Resolving]
  - Left ventricular dysfunction [Recovered/Resolved]
  - Prescription drug used without a prescription [Unknown]
  - Off label use [Unknown]
  - Overdose [Unknown]
  - Overdose [Unknown]
  - Intentional overdose [Unknown]

NARRATIVE: CASE EVENT DATE: 20230101
